FAERS Safety Report 5424050-1 (Version None)
Quarter: 2007Q3

REPORT INFORMATION
  Report Type: 
  Country: None (occurrence: None)
  Receive Date: 20070823
  Receipt Date: 20070822
  Transmission Date: 20080115
  Serious: Yes (Other)
  Sender: FDA-Public Use
  Company Number: US-SHR-US-2007-024009

PATIENT
  Age: 46 Year
  Sex: Female
  Weight: 63 kg

DRUGS (4)
  1. CLIMARA PRO [Suspect]
     Indication: OSTEOPENIA
     Dosage: 0.045 / 0.015 MG/D, CONT
     Route: 062
     Dates: start: 20061101, end: 20070301
  2. LIPITOR [Concomitant]
     Dosage: 10 MG, 1X/DAY
  3. SYNTHROID [Concomitant]
     Dosage: 100 A?G, 1X/DAY
  4. FOSAMAX ONCE WEEKLY [Concomitant]
     Dosage: 70 MG, 1X/WEEK

REACTIONS (2)
  - VISUAL ACUITY REDUCED [None]
  - VISUAL DISTURBANCE [None]
